FAERS Safety Report 13443698 (Version 1)
Quarter: 2017Q2

REPORT INFORMATION
  Report Type: Spontaneous
  Country: US (occurrence: US)
  Receive Date: 20170413
  Receipt Date: 20170413
  Transmission Date: 20170830
  Serious: Yes (Hospitalization)
  Sender: FDA-Public Use
  Company Number: None

PATIENT
  Age: 53 Year
  Sex: Female

DRUGS (11)
  1. BACLOFEN. [Concomitant]
     Active Substance: BACLOFEN
  2. DULCOLAX NOS [Concomitant]
     Active Substance: BISACODYL OR DOCUSATE SODIUM
  3. PROAIR HFA [Concomitant]
     Active Substance: ALBUTEROL SULFATE
  4. ADVAIR HFA [Concomitant]
     Active Substance: FLUTICASONE PROPIONATE\SALMETEROL XINAFOATE
  5. SULFADIMETHO [Concomitant]
  6. GABAPENTIN. [Concomitant]
     Active Substance: GABAPENTIN
  7. ULTRAM ER [Concomitant]
     Active Substance: TRAMADOL HYDROCHLORIDE
  8. LEVETIRACETA [Concomitant]
  9. GILENYA [Suspect]
     Active Substance: FINGOLIMOD HYDROCHLORIDE
     Indication: MULTIPLE SCLEROSIS
     Route: 048
     Dates: start: 201602
  10. TRAMADOL. [Concomitant]
     Active Substance: TRAMADOL
  11. TRAZODONE [Concomitant]
     Active Substance: TRAZODONE HYDROCHLORIDE

REACTIONS (2)
  - Fall [None]
  - Spinal fracture [None]

NARRATIVE: CASE EVENT DATE: 201703
